FAERS Safety Report 9752724 (Version 1)
Quarter: 2013Q4

REPORT INFORMATION
  Report Type: Spontaneous
  Country: US (occurrence: None)
  Receive Date: 20131212
  Receipt Date: 20131212
  Transmission Date: 20140711
  Serious: No
  Sender: FDA-Public Use
  Company Number: None

PATIENT
  Age: 38 Year
  Sex: Male
  Weight: 84.7 kg

DRUGS (2)
  1. CETUXIMAB [Suspect]
  2. DOCETAXEL [Suspect]

REACTIONS (2)
  - Mucosal inflammation [None]
  - Pain [None]
